FAERS Safety Report 12507581 (Version 1)
Quarter: 2016Q2

REPORT INFORMATION
  Report Type: Spontaneous
  Country: PL (occurrence: PL)
  Receive Date: 20160629
  Receipt Date: 20160629
  Transmission Date: 20160815
  Serious: Yes (Other)
  Sender: FDA-Public Use
  Company Number: PHHY2016PL085595

PATIENT
  Age: 57 Year
  Sex: Male

DRUGS (5)
  1. IMATINIB [Suspect]
     Active Substance: IMATINIB
     Dosage: 400 MG, QD
     Route: 065
     Dates: start: 20111214, end: 201207
  2. HYDROXYCARBAMIDE [Suspect]
     Active Substance: HYDROXYUREA
     Dosage: 1000 MG, QD
     Route: 065
     Dates: end: 201110
  3. IMATINIB [Suspect]
     Active Substance: IMATINIB
     Dosage: UNK
     Route: 065
     Dates: start: 201210
  4. HYDROXYCARBAMIDE [Suspect]
     Active Substance: HYDROXYUREA
     Indication: PRODUCT USED FOR UNKNOWN INDICATION
     Dosage: 1500 MG, UNK (FOR THREE WEEKS)
     Route: 065
  5. IMATINIB [Suspect]
     Active Substance: IMATINIB
     Indication: CHRONIC MYELOID LEUKAEMIA
     Dosage: 400 MG, QD
     Route: 065
     Dates: start: 20090902, end: 201009

REACTIONS (8)
  - Leukopenia [Unknown]
  - Marrow hyperplasia [Unknown]
  - Haemoglobin decreased [Unknown]
  - Drug ineffective [Unknown]
  - Neutropenia [Unknown]
  - Thrombocytopenia [Unknown]
  - Philadelphia chromosome positive [Unknown]
  - Fibrosis [Unknown]
